FAERS Safety Report 13040876 (Version 1)
Quarter: 2016Q4

REPORT INFORMATION
  Report Type: Spontaneous
  Country: US (occurrence: US)
  Receive Date: 20161219
  Receipt Date: 20161219
  Transmission Date: 20170207
  Serious: No
  Sender: FDA-Public Use
  Company Number: US-PFIZER INC-2016574725

PATIENT
  Age: 73 Year
  Sex: Male
  Weight: 56.7 kg

DRUGS (3)
  1. FOLIC ACID. [Concomitant]
     Active Substance: FOLIC ACID
     Dosage: 1 MG, DAILY
  2. PREDNISONE. [Concomitant]
     Active Substance: PREDNISONE
     Indication: RHEUMATOID ARTHRITIS
     Dosage: 2.5 MG, (ONCE EVERY 2 DAYS)
  3. SUTENT [Suspect]
     Active Substance: SUNITINIB MALATE
     Indication: RENAL CANCER
     Dosage: 50 MG, CYCLIC (TAKES FOR 30 DAYS THEN DOES NOT TAKE FOR 14 OR 15 DAYS AND THEN BACK ON FOR 30 DAYS)

REACTIONS (3)
  - Malaise [Unknown]
  - Blister [Recovered/Resolved]
  - Burning sensation [Unknown]
